FAERS Safety Report 24316511 (Version 3)
Quarter: 2024Q4

REPORT INFORMATION
  Report Type: Spontaneous
  Country: US (occurrence: US)
  Receive Date: 20240913
  Receipt Date: 20241111
  Transmission Date: 20250115
  Serious: No
  Sender: BRISTOL-MYERS SQUIBB COMPANY
  Company Number: US-BRISTOL-MYERS SQUIBB COMPANY-2024-142248

PATIENT
  Age: 92 Year
  Sex: Female

DRUGS (2)
  1. POMALYST [Suspect]
     Active Substance: POMALIDOMIDE
     Indication: Anaemia
     Dosage: FREQUENCY: TAKE 1 WHOLE CAPSULE BY MOUTH.
     Route: 048
  2. POMALYST [Suspect]
     Active Substance: POMALIDOMIDE
     Dosage: FREQUENCY: TAKE 1 WHOLE CAPSULE BY MOUTH.
     Route: 048

REACTIONS (3)
  - Fatigue [Recovering/Resolving]
  - Off label use [Unknown]
  - Extra dose administered [Unknown]
